FAERS Safety Report 13275779 (Version 1)
Quarter: 2017Q1

REPORT INFORMATION
  Report Type: Spontaneous
  Country: US (occurrence: US)
  Receive Date: 20170227
  Receipt Date: 20170227
  Transmission Date: 20170428
  Serious: Yes (Hospitalization, Disabling)
  Sender: FDA-Public Use
  Company Number: None

PATIENT
  Age: 72 Year
  Sex: Female
  Weight: 67.5 kg

DRUGS (7)
  1. SPIRIVA [Concomitant]
     Active Substance: TIOTROPIUM BROMIDE MONOHYDRATE
  2. DILTIAZEM. [Concomitant]
     Active Substance: DILTIAZEM
  3. VITAMIN D [Concomitant]
     Active Substance: CHOLECALCIFEROL
  4. ELIQUIS [Concomitant]
     Active Substance: APIXABAN
  5. OXYCODONE [Concomitant]
     Active Substance: OXYCODONE
  6. ADVAIR HFA [Concomitant]
     Active Substance: FLUTICASONE PROPIONATE\SALMETEROL XINAFOATE
  7. ALPRAZOLAM. [Suspect]
     Active Substance: ALPRAZOLAM
     Indication: ANXIETY
     Dosage: ?          QUANTITY:1 TABLET(S);?
     Route: 048
     Dates: start: 20170130, end: 20170216

REACTIONS (5)
  - Unresponsive to stimuli [None]
  - Amnesia [None]
  - Asthenia [None]
  - Pneumonia [None]
  - Feeling abnormal [None]

NARRATIVE: CASE EVENT DATE: 20170130
